FAERS Safety Report 7811248-8 (Version None)
Quarter: 2011Q4

REPORT INFORMATION
  Report Type: 
  Country: None (occurrence: None)
  Receive Date: 20111011
  Receipt Date: 20110926
  Transmission Date: 20120403
  Serious: Yes (Other)
  Sender: FDA-Public Use
  Company Number: 11-568

PATIENT
  Age: 52 Year
  Sex: Female
  Weight: 98 kg

DRUGS (2)
  1. CORITSONE [Concomitant]
  2. ALEVE (CAPLET) [Suspect]
     Indication: JOINT INJURY
     Dosage: 440MG/BID/ORAL
     Route: 048

REACTIONS (10)
  - NAUSEA [None]
  - FEELING ABNORMAL [None]
  - FATIGUE [None]
  - MUSCLE TWITCHING [None]
  - EYE DISORDER [None]
  - FLUSHING [None]
  - HEADACHE [None]
  - PARAESTHESIA [None]
  - VISION BLURRED [None]
  - MALAISE [None]
